FAERS Safety Report 4786663-X (Version None)
Quarter: 2005Q3

REPORT INFORMATION
  Report Type: 
  Country: None (occurrence: None)
  Receive Date: 20050930
  Receipt Date: 20050916
  Transmission Date: 20060218
  Serious: Yes (Death, Hospitalization, Other)
  Sender: FDA-Public Use
  Company Number: US_0411107895

PATIENT
  Age: 29 Year
  Sex: Female
  Weight: 113 kg

DRUGS (17)
  1. ZYPREXA [Suspect]
     Indication: BIPOLAR DISORDER
     Dosage: 20 MG
     Dates: start: 20010226, end: 20021020
  2. FLUOXETINE [Concomitant]
  3. SEROQUEL (QUETIAPINE FUMARTE) [Concomitant]
  4. HALDOL [Concomitant]
  5. DEPAKOTE [Concomitant]
  6. WWLLBUTRIN (BUPROPION HYDROCHLORIDE) [Concomitant]
  7. PREDNISOLONE [Concomitant]
  8. CLONAZEPAM [Concomitant]
  9. BENZTROPINE [Concomitant]
  10. FLUOCINOLONE ACETONIDE [Concomitant]
  11. ZYRTEC [Concomitant]
  12. RISPERDAL [Concomitant]
  13. DIPHENHYDRAMINE HCL [Concomitant]
  14. SULFAMETHOXAZOLE [Concomitant]
  15. PROMETRIUM [Concomitant]
  16. DOCUSATE [Concomitant]
  17. LORAZEPAM [Concomitant]

REACTIONS (24)
  - ARTERIOSCLEROSIS [None]
  - BLOOD CHLORIDE INCREASED [None]
  - BLOOD CREATININE INCREASED [None]
  - BLOOD GLUCOSE INCREASED [None]
  - BLOOD POTASSIUM INCREASED [None]
  - BLOOD SODIUM INCREASED [None]
  - BLOOD UREA INCREASED [None]
  - CAPILLARY DISORDER [None]
  - CARBON DIOXIDE ABNORMAL [None]
  - CARDIOMEGALY [None]
  - CONDITION AGGRAVATED [None]
  - DIABETIC KETOACIDOSIS [None]
  - GLOMERULAR VASCULAR DISORDER [None]
  - HEPATIC CONGESTION [None]
  - HEPATIC STEATOSIS [None]
  - HEPATOCELLULAR DAMAGE [None]
  - MYOCARDIAL FIBROSIS [None]
  - NEPHROSCLEROSIS [None]
  - PITUITARY ENLARGEMENT [None]
  - PITUITARY HAEMORRHAGE [None]
  - PORTAL TRIADITIS [None]
  - PULMONARY HAEMORRHAGE [None]
  - PULMONARY OEDEMA [None]
  - SCHIZOAFFECTIVE DISORDER [None]
